FAERS Safety Report 7043930-7 (Version None)
Quarter: 2010Q4

REPORT INFORMATION
  Report Type: 
  Country: None (occurrence: None)
  Receive Date: 20101013
  Receipt Date: 20100930
  Transmission Date: 20110411
  Serious: Yes (Death)
  Sender: FDA-Public Use
  Company Number: DK-GENENTECH-307609

PATIENT
  Sex: Male

DRUGS (5)
  1. MABTHERA [Suspect]
     Indication: MYOSITIS
     Dosage: 1000 MG, UNK
     Route: 042
     Dates: start: 20071001, end: 20100824
  2. PREDNISOLON [Suspect]
     Indication: MYOSITIS
     Dosage: UNK
     Route: 048
  3. FLUCONAZOLE [Concomitant]
     Indication: PRODUCT USED FOR UNKNOWN INDICATION
     Dosage: 400 MG, TID
  4. MEROPENEM [Concomitant]
     Indication: INFECTION
     Dosage: 1000 MG, BID
     Route: 042
  5. PERFALGAN [Concomitant]
     Indication: PAIN
     Dosage: 1 G, BID
     Route: 042

REACTIONS (1)
  - ENTEROCOCCAL INFECTION [None]
